FAERS Safety Report 6263392-7 (Version None)
Quarter: 2009Q3

REPORT INFORMATION
  Report Type: 
  Country: None (occurrence: None)
  Receive Date: 20090710
  Receipt Date: 20081007
  Transmission Date: 20100115
  Serious: No
  Sender: FDA-Public Use
  Company Number: A0750947A

PATIENT
  Age: 55 Year
  Sex: Female

DRUGS (5)
  1. FLOVENT [Suspect]
     Indication: ASTHMA
     Dosage: 2PUFF TWICE PER DAY
     Route: 055
     Dates: start: 20071001, end: 20080929
  2. VENTOLIN [Suspect]
     Indication: ASTHMA
     Dosage: 1PUFF AS REQUIRED
     Route: 055
     Dates: start: 20071001, end: 20080929
  3. ATENOLOL [Concomitant]
  4. AUGMENTIN '125' [Concomitant]
  5. ASPIRIN [Concomitant]

REACTIONS (1)
  - HYPOAESTHESIA [None]
